FAERS Safety Report 5236036-0 (Version None)
Quarter: 2007Q1

REPORT INFORMATION
  Report Type: 
  Country: None (occurrence: None)
  Receive Date: 20070212
  Receipt Date: 20070130
  Transmission Date: 20070707
  Serious: Yes (Death, Hospitalization, Disabling, Other)
  Sender: FDA-Public Use
  Company Number: US-ELI_LILLY_AND_COMPANY-US200511001238

PATIENT
  Age: 52 Year
  Sex: Female

DRUGS (1)
  1. FORTEO [Suspect]
     Dosage: 20 UG, UNK
     Dates: start: 20041101

REACTIONS (9)
  - ARTHRALGIA [None]
  - BACK PAIN [None]
  - COMPRESSION FRACTURE [None]
  - DEATH [None]
  - DIPLEGIA [None]
  - IMPAIRED HEALING [None]
  - MOBILITY DECREASED [None]
  - NEURILEMMOMA MALIGNANT [None]
  - PAIN [None]
